FAERS Safety Report 20947486 (Version 1)
Quarter: 2022Q2

REPORT INFORMATION
  Report Type: Spontaneous
  Country: US (occurrence: US)
  Receive Date: 20220610
  Receipt Date: 20220610
  Transmission Date: 20220721
  Serious: No
  Sender: FDA-Public Use
  Company Number: US-RIGEL PHARMACEUTICALS, INC.-2021FOS000814

PATIENT
  Sex: Male

DRUGS (2)
  1. TAVALISSE [Suspect]
     Active Substance: FOSTAMATINIB
     Indication: Product used for unknown indication
     Dosage: 100 MG, Q12H
     Route: 048
     Dates: start: 20211127
  2. TAVALISSE [Suspect]
     Active Substance: FOSTAMATINIB
     Dosage: 100 MG, Q12H
     Route: 048
     Dates: start: 20211112, end: 20211124

REACTIONS (5)
  - Gastroenteritis viral [Recovered/Resolved]
  - Eating disorder [Recovered/Resolved]
  - Unevaluable event [Recovered/Resolved]
  - Restless legs syndrome [Unknown]
  - Platelet count [Unknown]

NARRATIVE: CASE EVENT DATE: 20210101
